FAERS Safety Report 5824305-2 (Version None)
Quarter: 2008Q3

REPORT INFORMATION
  Report Type: 
  Country: None (occurrence: None)
  Receive Date: 20080722
  Receipt Date: 20080707
  Transmission Date: 20090109
  Serious: Yes (Death)
  Sender: FDA-Public Use
  Company Number: TNZIE200800109

PATIENT
  Sex: Male
  Weight: 2.95 kg

DRUGS (9)
  1. INNOHEP [Suspect]
     Dosage: (3500 IU) ;    (3500 IU,DAILY),SUBCUTANEOUS
     Route: 058
     Dates: start: 20060820, end: 20070326
  2. INNOHEP [Suspect]
     Dosage: (3500 IU) ;    (3500 IU,DAILY),SUBCUTANEOUS
     Route: 058
     Dates: start: 20070330, end: 20070404
  3. ASPIRIN [Concomitant]
  4. CEPHRADINE [Concomitant]
  5. ACETAMINOPHEN [Concomitant]
  6. PETHIDTNE (PETHIDINE) [Concomitant]
  7. PHENERGAN (PROMETHAZINE) [Concomitant]
  8. VELOSEF (CEFRADINE) [Concomitant]
  9. DEXAMETHASONE TAB [Concomitant]

REACTIONS (3)
  - MATERNAL DRUGS AFFECTING FOETUS [None]
  - NEONATAL RESPIRATORY DISTRESS SYNDROME [None]
  - SUDDEN INFANT DEATH SYNDROME [None]
